FAERS Safety Report 8948698 (Version 1)
Quarter: 2012Q4

REPORT INFORMATION
  Report Type: 
  Country: GB (occurrence: GB)
  Receive Date: 20121206
  Receipt Date: 20121206
  Transmission Date: 20130627
  Serious: Yes (Other)
  Sender: FDA-Public Use
  Company Number: PHFR2012GB005605

PATIENT
  Age: 40 Year
  Sex: Male

DRUGS (1)
  1. CLOZARIL [Suspect]
     Route: 048
     Dates: start: 20121010, end: 20121107

REACTIONS (17)
  - Upper respiratory tract infection [Unknown]
  - Cough [Unknown]
  - Sputum discoloured [Unknown]
  - Haematuria [Unknown]
  - Gastroenteritis [Unknown]
  - Vomiting [Unknown]
  - Abdominal pain upper [Unknown]
  - Diarrhoea [Unknown]
  - Nausea [Unknown]
  - Myocarditis [Unknown]
  - Chest pain [Unknown]
  - Alanine aminotransferase increased [Unknown]
  - Confusional state [Unknown]
  - Dysarthria [Unknown]
  - Tachycardia [Unknown]
  - White blood cell count increased [Unknown]
  - Irritability [Unknown]
